FAERS Safety Report 23550305 (Version 1)
Quarter: 2024Q1

REPORT INFORMATION
  Report Type: Spontaneous
  Country: US (occurrence: None)
  Receive Date: 20240221
  Receipt Date: 20240221
  Transmission Date: 20240409
  Serious: Yes (Death)
  Sender: FDA-Public Use
  Company Number: None

PATIENT
  Age: 50 Year
  Sex: Female

DRUGS (11)
  1. ZARXIO [Suspect]
     Active Substance: FILGRASTIM-SNDZ
     Indication: Breast cancer female
     Dosage: FREQ: INJECT 1 SYRINGE UNDER THE SKIN (SUBCUTANEOUS INJECTION) ONCE WEEKLY.?
     Route: 058
     Dates: start: 20230525
  2. AMOXICILLIN\CLAVULANATE POTASSIUM [Concomitant]
     Active Substance: AMOXICILLIN\CLAVULANATE POTASSIUM
  3. AMOXICILLIN [Concomitant]
     Active Substance: AMOXICILLIN
  4. FAMOTIDINE POW [Concomitant]
  5. FERROUS SULFATE [Concomitant]
     Active Substance: FERROUS SULFATE
  6. IBRANCE [Concomitant]
     Active Substance: PALBOCICLIB
  7. LEVOFLOXACIN [Concomitant]
     Active Substance: LEVOFLOXACIN
  8. LIDO/PRILOCN CRE [Concomitant]
  9. NEO/POLY/DEX SUS [Concomitant]
  10. OFLOXACIN [Concomitant]
     Active Substance: OFLOXACIN
  11. ONDANSETRON [Concomitant]
     Active Substance: ONDANSETRON

REACTIONS (1)
  - Death [None]

NARRATIVE: CASE EVENT DATE: 20240215
